FAERS Safety Report 21049132 (Version 2)
Quarter: 2022Q3

REPORT INFORMATION
  Report Type: Spontaneous
  Country: MY (occurrence: MY)
  Receive Date: 20220706
  Receipt Date: 20220707
  Transmission Date: 20221027
  Serious: Yes (Other)
  Sender: FDA-Public Use
  Company Number: MY-PFIZER INC-202200923269

PATIENT
  Age: 29 Year
  Sex: Female

DRUGS (1)
  1. CELECOXIB [Suspect]
     Active Substance: CELECOXIB
     Indication: Back pain
     Dosage: 400 MG, 1X/DAY
     Route: 048

REACTIONS (8)
  - Dermatitis bullous [Unknown]
  - Ocular hyperaemia [Unknown]
  - Eye discharge [Unknown]
  - Dyspnoea [Unknown]
  - Eye swelling [Unknown]
  - Dysphagia [Unknown]
  - Rash [Unknown]
  - Blister [Unknown]
